FAERS Safety Report 8949920 (Version 4)
Quarter: 2014Q1

REPORT INFORMATION
  Report Type: Spontaneous
  Country: US (occurrence: US)
  Receive Date: 20121205
  Receipt Date: 20140324
  Transmission Date: 20141002
  Serious: Yes (Hospitalization, Disabling, Other)
  Sender: FDA-Public Use
  Company Number: US-009507513-0803USA02798

PATIENT
  Sex: Female
  Weight: 62 kg

DRUGS (7)
  1. FOSAMAX [Suspect]
     Indication: OSTEOPOROSIS
     Dosage: 10 MG, QD
     Route: 048
     Dates: start: 19980220, end: 20030723
  2. FOSAMAX [Suspect]
     Indication: OSTEOGENESIS IMPERFECTA
     Dosage: 70 MG, QW
     Route: 048
     Dates: start: 20030724, end: 20031110
  3. FOSAMAX [Suspect]
     Dosage: 10 MG, QD
     Route: 048
     Dates: start: 20031111, end: 20040923
  4. FOSAMAX [Suspect]
     Dosage: 10 MG,QD
     Route: 048
     Dates: start: 20050309, end: 20080301
  5. ALENDRONATE SODIUM [Suspect]
     Indication: OSTEOPOROSIS
     Dosage: 10 MG, QD
     Route: 048
     Dates: start: 20080408, end: 20090103
  6. ALENDRONATE SODIUM [Suspect]
     Indication: OSTEOGENESIS IMPERFECTA
  7. ACTONEL [Suspect]
     Indication: OSTEOPOROSIS
     Dosage: 35 MG, QW
     Route: 048
     Dates: start: 20040924, end: 20041101

REACTIONS (26)
  - Femur fracture [Recovered/Resolved]
  - Fall [Recovered/Resolved]
  - Open reduction of fracture [Recovered/Resolved]
  - Medical device removal [Recovered/Resolved]
  - Femur fracture [Unknown]
  - Open reduction of fracture [Unknown]
  - Fracture delayed union [Recovered/Resolved]
  - Intramedullary rod insertion [Unknown]
  - Hypertension [Recovered/Resolved]
  - Eyelid ptosis [Unknown]
  - Low turnover osteopathy [Unknown]
  - Tinnitus [Not Recovered/Not Resolved]
  - Breast mass [Unknown]
  - Oropharyngeal pain [Unknown]
  - Blood cholesterol increased [Unknown]
  - Spinal compression fracture [Unknown]
  - Adverse drug reaction [Unknown]
  - Depressed mood [Unknown]
  - Weight increased [Unknown]
  - Bone density decreased [Unknown]
  - Impaired healing [Unknown]
  - Hypertension [Recovered/Resolved]
  - Condition aggravated [Unknown]
  - Tooth extraction [Unknown]
  - Pharyngeal oedema [Unknown]
  - Dyspepsia [Unknown]
